FAERS Safety Report 18917707 (Version 1)
Quarter: 2021Q1

REPORT INFORMATION
  Report Type: Spontaneous
  Country: US (occurrence: US)
  Receive Date: 20210219
  Receipt Date: 20210219
  Transmission Date: 20210420
  Serious: No
  Sender: FDA-Public Use
  Company Number: US-ALKERMES INC.-ALK-2021-000762

PATIENT

DRUGS (2)
  1. VIVITROL [Suspect]
     Active Substance: NALTREXONE
     Dosage: 380 MILLIGRAM, Q3WK
     Route: 030
  2. VIVITROL [Suspect]
     Active Substance: NALTREXONE
     Indication: PRODUCT USED FOR UNKNOWN INDICATION
     Dosage: 380 MILLIGRAM, Q4WK
     Route: 030

REACTIONS (1)
  - Off label use [Recovered/Resolved]
